FAERS Safety Report 4903314-1 (Version None)
Quarter: 2006Q1

REPORT INFORMATION
  Report Type: 
  Country: None (occurrence: None)
  Receive Date: 20060208
  Receipt Date: 20051031
  Transmission Date: 20060701
  Serious: Yes (Hospitalization, Other)
  Sender: FDA-Public Use
  Company Number: JP-SP-2005-02297

PATIENT
  Age: 64 Year
  Sex: Male

DRUGS (4)
  1. IMMUCYST [Suspect]
     Indication: CARCINOMA IN SITU OF BLADDER
     Dosage: ONCE A WEEK
     Route: 043
     Dates: start: 20050908, end: 20051006
  2. IMMUCYST [Suspect]
     Dosage: ONCE A WEEK
     Route: 043
     Dates: start: 20050908, end: 20051006
  3. NIFEDIPINE [Concomitant]
     Route: 048
  4. ALLOPURINOL [Concomitant]
     Route: 048

REACTIONS (5)
  - ARTHRALGIA [None]
  - BACK PAIN [None]
  - DYSURIA [None]
  - POLYARTHRITIS [None]
  - WHITE BLOOD CELL COUNT INCREASED [None]
